FAERS Safety Report 16438835 (Version 2)
Quarter: 2019Q2

REPORT INFORMATION
  Report Type: Spontaneous
  Country: US (occurrence: US)
  Receive Date: 20190617
  Receipt Date: 20190621
  Transmission Date: 20190711
  Serious: Yes (Other)
  Sender: FDA-Public Use
  Company Number: US-AMGEN INC.-USASL2019095073

PATIENT
  Age: 58 Year
  Sex: Female

DRUGS (1)
  1. AIMOVIG [Suspect]
     Active Substance: ERENUMAB-AOOE
     Indication: MIGRAINE PROPHYLAXIS
     Dosage: 70 MILLIGRAM
     Route: 065
     Dates: start: 20190605

REACTIONS (8)
  - Fatigue [Not Recovered/Not Resolved]
  - Migraine [Not Recovered/Not Resolved]
  - Constipation [Not Recovered/Not Resolved]
  - Diverticulitis [Not Recovered/Not Resolved]
  - Visual impairment [Not Recovered/Not Resolved]
  - Diverticulum [Not Recovered/Not Resolved]
  - Abdominal distension [Not Recovered/Not Resolved]
  - Discomfort [Not Recovered/Not Resolved]

NARRATIVE: CASE EVENT DATE: 201906
